FAERS Safety Report 11019412 (Version 2)
Quarter: 2015Q2

REPORT INFORMATION
  Report Type: Spontaneous
  Country: US (occurrence: US)
  Receive Date: 20150412
  Receipt Date: 20150525
  Transmission Date: 20150821
  Serious: No
  Sender: FDA-Public Use
  Company Number: US-JNJFOC-20141104686

PATIENT
  Age: 4 Month
  Sex: Female
  Weight: 4.08 kg

DRUGS (2)
  1. LEVAQUIN [Suspect]
     Active Substance: LEVOFLOXACIN
     Indication: UPPER RESPIRATORY TRACT INFECTION
     Route: 063
     Dates: start: 2014, end: 2014
  2. LEVAQUIN [Suspect]
     Active Substance: LEVOFLOXACIN
     Indication: URINARY TRACT INFECTION
     Route: 063
     Dates: start: 2014, end: 2014

REACTIONS (4)
  - Gastrooesophageal reflux disease [Unknown]
  - Exposure during breast feeding [Recovered/Resolved]
  - Appetite disorder [Unknown]
  - Vomiting [Unknown]

NARRATIVE: CASE EVENT DATE: 2014
